FAERS Safety Report 12894275 (Version 1)
Quarter: 2016Q4

REPORT INFORMATION
  Report Type: Spontaneous
  Country: JP (occurrence: JP)
  Receive Date: 20161028
  Receipt Date: 20161028
  Transmission Date: 20170207
  Serious: Yes (Other)
  Sender: FDA-Public Use
  Company Number: JP-BRISTOL-MYERS SQUIBB COMPANY-BMS-2014-005449

PATIENT
  Sex: Female

DRUGS (2)
  1. ABILIFY [Suspect]
     Active Substance: ARIPIPRAZOLE
     Indication: PRODUCT USED FOR UNKNOWN INDICATION
     Dosage: 3 MG, UNK
     Route: 048
  2. ABILIFY [Suspect]
     Active Substance: ARIPIPRAZOLE
     Indication: PRODUCT USED FOR UNKNOWN INDICATION
     Dosage: 6 MG, UNK
     Route: 065

REACTIONS (8)
  - Blood glucose abnormal [Unknown]
  - Malaise [Unknown]
  - Diabetic nephropathy [Unknown]
  - Renal failure [Unknown]
  - Glycosylated haemoglobin increased [Recovered/Resolved]
  - Diabetic ketoacidosis [Unknown]
  - Diabetes mellitus [Recovering/Resolving]
  - Cardiac failure [Unknown]
